FAERS Safety Report 26117070 (Version 1)
Quarter: 2025Q4

REPORT INFORMATION
  Report Type: Spontaneous
  Country: US (occurrence: None)
  Receive Date: 20251202
  Receipt Date: 20251202
  Transmission Date: 20260118
  Serious: Yes (Hospitalization)
  Sender: FDA-CTU
  Company Number: None

PATIENT
  Age: 54 Year
  Sex: Female

DRUGS (13)
  1. DALFAMPRIDINE [Suspect]
     Active Substance: DALFAMPRIDINE
     Indication: Multiple sclerosis
     Dosage: 10 MG DAILY ORAL
     Route: 048
     Dates: start: 20240816
  2. LORATADINE [Concomitant]
     Active Substance: LORATADINE
  3. BACLOFEN [Concomitant]
     Active Substance: BACLOFEN
  4. Docusate Sodium 100 mg [Concomitant]
  5. FLUTICASONE [Concomitant]
     Active Substance: FLUTICASONE
  6. Hydrocortisone 10 mg [Concomitant]
  7. Levothyroxine 0.112 mg [Concomitant]
  8. OXYBUTYNIN CHLORIDE [Concomitant]
     Active Substance: OXYBUTYNIN CHLORIDE
  9. CALCIUM [Concomitant]
     Active Substance: CALCIUM
  10. PREGABALIN [Concomitant]
     Active Substance: PREGABALIN
  11. ROSUVASTATIN [Concomitant]
     Active Substance: ROSUVASTATIN
  12. TRAZODONE [Concomitant]
     Active Substance: TRAZODONE HYDROCHLORIDE
  13. WEGOVY [Concomitant]
     Active Substance: SEMAGLUTIDE

REACTIONS (2)
  - Peripheral swelling [None]
  - Pain in extremity [None]

NARRATIVE: CASE EVENT DATE: 20251130
